FAERS Safety Report 8535816-3 (Version None)
Quarter: 2012Q3

REPORT INFORMATION
  Report Type: 
  Country: None (occurrence: None)
  Receive Date: 20120725
  Receipt Date: 20120531
  Transmission Date: 20120928
  Serious: No
  Sender: FDA-Public Use
  Company Number: US-BAYER-2012-054220

PATIENT
  Age: 47 Year
  Sex: Male

DRUGS (4)
  1. LISINOPRIL [Concomitant]
  2. CRESTOR [Concomitant]
  3. LEVITRA [Suspect]
     Indication: ERECTILE DYSFUNCTION
     Dosage: 10 MG, UNK
     Route: 048
  4. VERAL [Concomitant]

REACTIONS (4)
  - SWELLING FACE [None]
  - FEELING ABNORMAL [None]
  - FLUSHING [None]
  - ERYTHEMA [None]
